FAERS Safety Report 11610787 (Version 1)
Quarter: 2015Q4

REPORT INFORMATION
  Report Type: Spontaneous
  Country: US (occurrence: None)
  Receive Date: 20151007
  Receipt Date: 20151007
  Transmission Date: 20160304
  Serious: Yes (Hospitalization, Disabling, Other)
  Sender: FDA-Public Use
  Company Number: None

PATIENT
  Age: 66 Year
  Sex: Female
  Weight: 115.21 kg

DRUGS (1)
  1. RITUXAN [Suspect]
     Active Substance: RITUXIMAB
     Indication: RHEUMATOID ARTHRITIS
     Dates: end: 20140902

REACTIONS (5)
  - Eye infection fungal [None]
  - Blindness [None]
  - Eye pain [None]
  - Ulcerative keratitis [None]
  - Corneal perforation [None]

NARRATIVE: CASE EVENT DATE: 20140416
